FAERS Safety Report 6313224-3 (Version None)
Quarter: 2009Q3

REPORT INFORMATION
  Report Type: 
  Country: None (occurrence: None)
  Receive Date: 20090814
  Receipt Date: 20090731
  Transmission Date: 20100115
  Serious: Yes (Death)
  Sender: FDA-Public Use
  Company Number: 2009002086

PATIENT
  Age: 79 Year
  Sex: Male
  Weight: 72 kg

DRUGS (11)
  1. ERLOTINIB (ERLOTINIB) (TABLET) (ERLOTINIB) [Suspect]
     Indication: NON-SMALL CELL LUNG CANCER
     Dosage: (150 MG,QD), ORAL
     Route: 048
     Dates: start: 20090601, end: 20090614
  2. CP-751,871 (INJECTION FOR INFUSION) [Suspect]
     Indication: NON-SMALL CELL LUNG CANCER
     Dosage: (1440 MG,DAYS 1 AND 2 Q3W), INTRAVENOUS
     Route: 042
     Dates: start: 20090601
  3. FUROSEMIDE [Concomitant]
  4. LOSARTAN (LOSARTAN) [Concomitant]
  5. SALMETEROL XINAFOATE (SALMETEROL XINAFOATE) [Concomitant]
  6. IPRATROPIUM BROMIDE [Concomitant]
  7. DEXAVEN (DEXAMETHASONE SODIUM PHOSPHATE) [Concomitant]
  8. MANNITOL [Concomitant]
  9. METOCLOPRAMIDE [Concomitant]
  10. TORECAN [Concomitant]
  11. POLPRAZOL (OMEPPAZOLE) [Concomitant]

REACTIONS (1)
  - MALIGNANT NEOPLASM PROGRESSION [None]
